FAERS Safety Report 4896897-1 (Version None)
Quarter: 2006Q1

REPORT INFORMATION
  Report Type: 
  Country: None (occurrence: None)
  Receive Date: 20060126
  Receipt Date: 20060118
  Transmission Date: 20060701
  Serious: Yes (Other)
  Sender: FDA-Public Use
  Company Number: 805#1#2006-00001

PATIENT
  Age: 81 Year
  Sex: Male

DRUGS (6)
  1. ALPROSTADIL [Suspect]
     Indication: LUMBAR SPINAL STENOSIS
     Dosage: SEE IMAGE
     Route: 041
     Dates: start: 20041106, end: 20041107
  2. ALPROSTADIL [Suspect]
     Indication: LUMBAR SPINAL STENOSIS
     Dosage: SEE IMAGE
     Route: 041
     Dates: start: 20050614, end: 20050628
  3. LIMAPROST ALFADEX (ALPROSTADIL (PAOD)) [Concomitant]
  4. LOXOPROFEN SODIUM (LOXOPROFEN SODIUM) [Concomitant]
  5. REBAMIPIDE (REBAMIPIDE) [Concomitant]
  6. RISEDRONATE SODIUM HYDRATE (RISEDRONATE SODIUM) [Concomitant]

REACTIONS (5)
  - BLOOD ALKALINE PHOSPHATASE INCREASED [None]
  - DECREASED APPETITE [None]
  - NAUSEA [None]
  - PYREXIA [None]
  - SUPRAVENTRICULAR TACHYCARDIA [None]
